FAERS Safety Report 8099420 (Version 3)
Quarter: 2014Q1

REPORT INFORMATION
  Report Type: Spontaneous
  Country: AU (occurrence: AU)
  Receive Date: 20110822
  Receipt Date: 20140128
  Transmission Date: 20141002
  Serious: No
  Sender: FDA-Public Use
  Company Number: AU-JNJFOC-20110805630

PATIENT
  Sex: Male

DRUGS (3)
  1. DUROGESIC [Suspect]
     Indication: POST-TRAUMATIC PAIN
     Route: 062
  2. DUROGESIC [Suspect]
     Indication: POST-TRAUMATIC PAIN
     Route: 062
     Dates: start: 201012
  3. UNKNOWN MEDICATION [Concomitant]
     Route: 065

REACTIONS (5)
  - Withdrawal syndrome [Unknown]
  - Drug effect decreased [Unknown]
  - Product quality issue [Unknown]
  - Wrong technique in drug usage process [Unknown]
  - Product quality issue [Unknown]
